FAERS Safety Report 10037916 (Version 9)
Quarter: 2017Q4

REPORT INFORMATION
  Report Type: Report from Study
  Country: US (occurrence: US)
  Receive Date: 20140326
  Receipt Date: 20171003
  Transmission Date: 20180320
  Serious: Yes (Death, Hospitalization, Other)
  Sender: FDA-Public Use
  Company Number: US-SA-2014SA035553

PATIENT
  Age: 80 Year
  Sex: Female

DRUGS (2)
  1. CEREZYME [Suspect]
     Active Substance: IMIGLUCERASE
     Indication: GAUCHER^S DISEASE
     Dosage: DOSE: 4000 UNITS ALTERNATING WITH 4400 UNITS EVERY TWO WEEKS
     Route: 041
     Dates: start: 2014, end: 20150427
  2. CEREZYME [Suspect]
     Active Substance: IMIGLUCERASE
     Indication: GAUCHER^S DISEASE
     Dosage: DOSE: 4000 UNITS ALTERNATING WITH 4400 UNITS EVERY TWO WEEKS
     Route: 041
     Dates: start: 20010827, end: 20140414

REACTIONS (10)
  - Haemorrhage [Not Recovered/Not Resolved]
  - Hernia [Not Recovered/Not Resolved]
  - Bacterial infection [Recovering/Resolving]
  - Cardiac failure congestive [Recovering/Resolving]
  - Death [Fatal]
  - Urinary tract infection [Recovering/Resolving]
  - Pneumonia [Not Recovered/Not Resolved]
  - Pain [Not Recovered/Not Resolved]
  - Dyspnoea [Unknown]
  - Arterial occlusive disease [Not Recovered/Not Resolved]

NARRATIVE: CASE EVENT DATE: 2014
